FAERS Safety Report 8227489-4 (Version None)
Quarter: 2012Q1

REPORT INFORMATION
  Report Type: 
  Country: None (occurrence: None)
  Receive Date: 20120322
  Receipt Date: 20120321
  Transmission Date: 20120608
  Serious: Yes (Other)
  Sender: FDA-Public Use
  Company Number: PHHY2012JP020322

PATIENT
  Age: 60 Year
  Sex: Male

DRUGS (2)
  1. REVLIMID [Suspect]
     Route: 048
  2. DIOVAN [Suspect]
     Dosage: UNK
     Route: 048

REACTIONS (1)
  - HAEMOLYTIC ANAEMIA [None]
